FAERS Safety Report 4724055-X (Version None)
Quarter: 2005Q3

REPORT INFORMATION
  Report Type: 
  Country: None (occurrence: None)
  Receive Date: 20050722
  Receipt Date: 20050712
  Transmission Date: 20060218
  Serious: Yes (Hospitalization)
  Sender: FDA-Public Use
  Company Number: 200510403BFR

PATIENT
  Age: 80 Year
  Sex: Male

DRUGS (9)
  1. CIPROFLOXACIN [Suspect]
     Dosage: ORAL
     Route: 048
     Dates: start: 20050426, end: 20050516
  2. VFEND [Concomitant]
  3. LASILIX [Concomitant]
  4. GRANOCYTE [Concomitant]
  5. MONO-TILDIEM [Concomitant]
  6. ZOLOFT [Concomitant]
  7. ZOCOR [Concomitant]
  8. AZACTAM(ANTIBACTERIALS FOR SYSTEMIC USE) [Suspect]
     Dosage: ORAL
     Route: 048
     Dates: start: 20050429, end: 20050517
  9. VANCOMYCIN [Suspect]
     Dosage: ORAL
     Route: 048

REACTIONS (3)
  - PURPURA [None]
  - RASH MACULO-PAPULAR [None]
  - THROMBOCYTOPENIA [None]
